FAERS Safety Report 9593346 (Version 1)
Quarter: 2013Q3

REPORT INFORMATION
  Report Type: Spontaneous
  Country: US (occurrence: None)
  Receive Date: 20130930
  Receipt Date: 20130930
  Transmission Date: 20140515
  Serious: No
  Sender: FDA-Public Use
  Company Number: 1000046162

PATIENT
  Age: 80 Year
  Sex: Male

DRUGS (7)
  1. LINZESS [Suspect]
     Indication: IRRITABLE BOWEL SYNDROME
     Route: 048
     Dates: start: 20130623
  2. LANTUS (INSULIN GLARGINE) (INSULIN GLARGINE) [Concomitant]
  3. JANUVIA (SITAGLIPTIN PHOSPHATE) (SITAGLIPTIN PHOSPHATE) [Concomitant]
  4. VALSARTAN (VALSARTAN) (VALSARTAN) [Concomitant]
  5. AMLODIPIINE (AMLODIPINE) (AMLODIPINE) [Concomitant]
  6. ASPIRIN (ACETYLSALICYLIC ACID) (ACETYLSALICYLIC ACID) [Concomitant]
  7. LEVOTHYROXINE (LEVOTHYROXINE SODIUM) (LEVOTHYROXINE SODIUM) [Concomitant]

REACTIONS (2)
  - Dizziness [None]
  - Diarrhoea [None]
